FAERS Safety Report 23955333 (Version 6)
Quarter: 2024Q4

REPORT INFORMATION
  Report Type: Report from Study
  Country: US (occurrence: US)
  Receive Date: 20240610
  Receipt Date: 20241213
  Transmission Date: 20250115
  Serious: Yes (Other)
  Sender: NOVARTIS
  Company Number: US-002147023-NVSC2024US016189

PATIENT
  Age: 54 Year
  Sex: Female

DRUGS (2)
  1. KESIMPTA [Suspect]
     Active Substance: OFATUMUMAB
     Indication: Product used for unknown indication
     Dosage: FIRST DOSE
     Route: 065
     Dates: start: 20240111
  2. KESIMPTA [Suspect]
     Active Substance: OFATUMUMAB
     Dosage: SECOND DOSE
     Route: 065

REACTIONS (22)
  - Optic neuritis [Unknown]
  - Condition aggravated [Unknown]
  - Optic nerve injury [Unknown]
  - Influenza like illness [Recovered/Resolved]
  - Chills [Recovered/Resolved]
  - Pain [Recovered/Resolved]
  - Fatigue [Recovered/Resolved]
  - Pain [Recovered/Resolved]
  - Vomiting [Recovered/Resolved]
  - Nausea [Recovered/Resolved]
  - Spinal stenosis [Unknown]
  - Pain [Unknown]
  - Muscle spasms [Unknown]
  - Mobility decreased [Unknown]
  - Fatigue [Unknown]
  - Chills [Unknown]
  - Arthritis [Unknown]
  - Arthralgia [Unknown]
  - Influenza like illness [Unknown]
  - Ophthalmic migraine [Unknown]
  - Visual field defect [Unknown]
  - Sleep disorder [Unknown]

NARRATIVE: CASE EVENT DATE: 20240111
